FAERS Safety Report 15369429 (Version 5)
Quarter: 2020Q2

REPORT INFORMATION
  Report Type: Report from Study
  Country: None (occurrence: IL)
  Receive Date: 20180911
  Receipt Date: 20200508
  Transmission Date: 20200713
  Serious: Yes (Hospitalization)
  Sender: FDA-Public Use
  Company Number: IL-ABBVIE-18S-082-2475310-00

PATIENT
  Age: 70 Year
  Sex: Male

DRUGS (4)
  1. DUODOPA [Suspect]
     Active Substance: CARBIDOPA\LEVODOPA
     Indication: PARKINSON^S DISEASE
     Dosage: MD:14 ML, CURRENT FIXED RATE: 3.5 ML/ HOUR, ED: 2.2 ML, INCREASED DOSE
     Route: 050
     Dates: start: 20180604
  2. DUODOPA [Suspect]
     Active Substance: CARBIDOPA\LEVODOPA
     Dosage: CURRENT MORNING DOSE- 16 ML, CONTINUOUS RATE- 4.5 ML/ HOUR, CURRENT EXTRA DOSE- 2.5 ML
     Route: 050
  3. DUODOPA [Suspect]
     Active Substance: CARBIDOPA\LEVODOPA
     Dosage: CURRENT MORNING DOSE- 16 ML, CONTINUOUS RATE- 4.8 ML/ HOUR, CURRENT EXTRA DOSE- 2.5 ML
     Route: 050
  4. DUODOPA [Suspect]
     Active Substance: CARBIDOPA\LEVODOPA
     Dosage: CURRENT: MORNING DOSE 16ML, CONTINUOUS DOSE 4.5ML/HOUR, EXTRA DOSE 2.5ML
     Route: 050

REACTIONS (10)
  - Upper limb fracture [Unknown]
  - Gait disturbance [Unknown]
  - Fall [Recovered/Resolved]
  - Fall [Not Recovered/Not Resolved]
  - On and off phenomenon [Unknown]
  - Somnambulism [Unknown]
  - Middle insomnia [Unknown]
  - Gait disturbance [Unknown]
  - Freezing phenomenon [Unknown]
  - Unevaluable event [Unknown]

NARRATIVE: CASE EVENT DATE: 2018
